FAERS Safety Report 9701625 (Version 2)
Quarter: 2013Q4

REPORT INFORMATION
  Report Type: Spontaneous
  Country: US (occurrence: US)
  Receive Date: 20131119
  Receipt Date: 20131119
  Transmission Date: 20140711
  Serious: Yes (Other)
  Sender: FDA-Public Use
  Company Number: US-ORACLE-2011S1000050

PATIENT
  Age: 38 Year
  Sex: Male

DRUGS (13)
  1. KRYSTEXXA INJECTION [Suspect]
     Indication: GOUT
     Route: 042
     Dates: start: 20110609, end: 20110609
  2. KRYSTEXXA INJECTION [Suspect]
     Indication: GOUT
     Route: 042
     Dates: start: 20110623, end: 20110623
  3. KRYSTEXXA INJECTION [Suspect]
     Indication: GOUT
     Route: 042
     Dates: start: 20110708, end: 20110708
  4. SOLU MEDROL [Concomitant]
     Indication: PREMEDICATION
     Route: 042
     Dates: start: 20110609, end: 20110609
  5. SOLU MEDROL [Concomitant]
     Indication: PREMEDICATION
     Route: 042
     Dates: start: 20110623, end: 20110623
  6. SOLU MEDROL [Concomitant]
     Indication: PREMEDICATION
     Route: 042
     Dates: start: 20110708, end: 20110708
  7. TYLENOL /00020001/ [Concomitant]
     Indication: PREMEDICATION
     Route: 048
     Dates: start: 20110609, end: 20110609
  8. TYLENOL /00020001/ [Concomitant]
     Indication: PREMEDICATION
     Route: 048
     Dates: start: 20110623, end: 20110623
  9. TYLENOL /00020001/ [Concomitant]
     Indication: PREMEDICATION
     Route: 048
     Dates: start: 20110708, end: 20110708
  10. ALLEGRA [Concomitant]
     Indication: PREMEDICATION
     Route: 048
     Dates: start: 20110609, end: 20110609
  11. ALLEGRA [Concomitant]
     Indication: PREMEDICATION
     Route: 048
     Dates: start: 20110623, end: 20110623
  12. ALLEGRA [Concomitant]
     Indication: PREMEDICATION
     Route: 048
     Dates: start: 20110708, end: 20110708
  13. COLCRYS [Concomitant]

REACTIONS (4)
  - Infusion related reaction [Recovered/Resolved]
  - Gout [Recovering/Resolving]
  - Nausea [Unknown]
  - Therapeutic response decreased [Unknown]
